FAERS Safety Report 7355255-0 (Version None)
Quarter: 2011Q1

REPORT INFORMATION
  Report Type: 
  Country: None (occurrence: None)
  Receive Date: 20110316
  Receipt Date: 20110311
  Transmission Date: 20110831
  Serious: Yes (Death, Other)
  Sender: FDA-Public Use
  Company Number: IE-PFIZER INC-2010158162

PATIENT
  Sex: Male

DRUGS (1)
  1. ECALTA [Suspect]
     Indication: OESOPHAGEAL CANDIDIASIS
     Dosage: 100 MG, 1X/DAY
     Dates: start: 20100101

REACTIONS (2)
  - DEATH [None]
  - LIVER FUNCTION TEST ABNORMAL [None]
